FAERS Safety Report 18019989 (Version 3)
Quarter: 2020Q4

REPORT INFORMATION
  Report Type: Report from Study
  Country: None (occurrence: US)
  Receive Date: 20200714
  Receipt Date: 20201006
  Transmission Date: 20210113
  Serious: No
  Sender: FDA-Public Use
  Company Number: US-BIOVITRUM-2020US1080

PATIENT
  Sex: Female

DRUGS (2)
  1. KINERET [Suspect]
     Active Substance: ANAKINRA
     Indication: PRODUCT USED FOR UNKNOWN INDICATION
     Route: 058
     Dates: start: 20190511
  2. KINERET [Suspect]
     Active Substance: ANAKINRA
     Route: 058
     Dates: start: 20190506

REACTIONS (9)
  - Dizziness [Recovered/Resolved]
  - Medication error [Unknown]
  - Feeling abnormal [Unknown]
  - Chest pain [Recovered/Resolved]
  - Fatigue [Unknown]
  - Blood pressure decreased [Recovered/Resolved]
  - Musculoskeletal stiffness [Unknown]
  - Pyrexia [Unknown]
  - Product dose omission issue [Unknown]
